FAERS Safety Report 9734272 (Version 2)
Quarter: 2013Q4

REPORT INFORMATION
  Report Type: Report from Study
  Country: MX (occurrence: MX)
  Receive Date: 20131205
  Receipt Date: 20131205
  Transmission Date: 20140711
  Serious: Yes (Death)
  Sender: FDA-Public Use
  Company Number: MX-ROCHE-1221307

PATIENT
  Age: 63 Year
  Sex: Female
  Weight: 44 kg

DRUGS (3)
  1. AVASTIN [Suspect]
     Indication: COLORECTAL CANCER METASTATIC
     Route: 042
  2. XELODA [Suspect]
     Indication: COLORECTAL CANCER METASTATIC
     Route: 048
  3. REVANGE (ACETAMINOPHEN/TRAMADOL HYDROCHLORIDE) [Concomitant]
     Indication: PAIN
     Route: 048

REACTIONS (9)
  - Disease progression [Fatal]
  - Paraesthesia [Recovering/Resolving]
  - Asthenia [Not Recovered/Not Resolved]
  - Palmar-plantar erythrodysaesthesia syndrome [Recovering/Resolving]
  - Pyrexia [Not Recovered/Not Resolved]
  - Weight decreased [Unknown]
  - Hiccups [Not Recovered/Not Resolved]
  - Decreased appetite [Not Recovered/Not Resolved]
  - Vomiting [Not Recovered/Not Resolved]
